FAERS Safety Report 25030022 (Version 1)
Quarter: 2025Q1

REPORT INFORMATION
  Report Type: Report from Study
  Country: US (occurrence: US)
  Receive Date: 20250303
  Receipt Date: 20250303
  Transmission Date: 20250408
  Serious: Yes (Disabling)
  Sender: GILEAD
  Company Number: US-GILEAD-2025-0705783

PATIENT
  Sex: Female

DRUGS (3)
  1. AZTREONAM LYSINE [Suspect]
     Active Substance: AZTREONAM LYSINE
     Indication: Cystic fibrosis
     Dosage: 75MG INHILATION 3 TIMES A DAY
     Route: 055
     Dates: start: 20200210
  2. DUPIXENT [Suspect]
     Active Substance: DUPILUMAB
     Indication: Asthma
     Dosage: 300MG SUBCUTANEOUS EVERY 14 DAYS
     Route: 058
     Dates: start: 20240515
  3. TRIKAFTA [Suspect]
     Active Substance: ELEXACAFTOR\IVACAFTOR\TEZACAFTOR
     Indication: Cystic fibrosis
     Dosage: 100/50/75/150MG ORAL 2 ORANGE TABLETS BY MOUTH IN THE MORNING AND 1 LIGHT BLUE TABLET IN THE EVENING
     Route: 048
     Dates: start: 20241114

REACTIONS (1)
  - Visual impairment [Unknown]
